FAERS Safety Report 12437832 (Version 1)
Quarter: 2016Q2

REPORT INFORMATION
  Report Type: Spontaneous
  Country: US (occurrence: None)
  Receive Date: 20160603
  Receipt Date: 20160603
  Transmission Date: 20160815
  Serious: Yes (Hospitalization)
  Sender: FDA-Public Use
  Company Number: None

PATIENT
  Age: 2 Year
  Sex: Male

DRUGS (6)
  1. SOD FLUORIDE DRO [Concomitant]
  2. ATENOLOL. [Concomitant]
     Active Substance: ATENOLOL
  3. IRON SUPPLMT DRO [Concomitant]
  4. AFINITOR DISPERZ [Suspect]
     Active Substance: EVEROLIMUS
     Indication: BRAIN NEOPLASM
     Dosage: 2MG MIXED W H2O QD PO
     Route: 048
     Dates: start: 201604
  5. LOSARTAN. [Concomitant]
     Active Substance: LOSARTAN
  6. AFINITOR DISPERZ [Suspect]
     Active Substance: EVEROLIMUS
     Indication: TUBEROUS SCLEROSIS
     Dosage: 2MG MIXED W H2O QD PO
     Route: 048
     Dates: start: 201604

REACTIONS (1)
  - Diarrhoea [None]

NARRATIVE: CASE EVENT DATE: 201605
